FAERS Safety Report 4426294-4 (Version None)
Quarter: 2004Q3

REPORT INFORMATION
  Report Type: 
  Country: None (occurrence: None)
  Receive Date: 20040811
  Receipt Date: 20040727
  Transmission Date: 20050211
  Serious: No
  Sender: FDA-Public Use
  Company Number: 04P-056-0268296-00

PATIENT
  Sex: Female

DRUGS (1)
  1. TRICOR [Suspect]

REACTIONS (1)
  - APLASTIC ANAEMIA [None]
